FAERS Safety Report 6634973-3 (Version None)
Quarter: 2010Q1

REPORT INFORMATION
  Report Type: 
  Country: None (occurrence: None)
  Receive Date: 20100315
  Receipt Date: 20100305
  Transmission Date: 20100710
  Serious: Yes (Hospitalization, Disabling, Other)
  Sender: FDA-Public Use
  Company Number: US-BAYER-200937920NA

PATIENT
  Age: 36 Year
  Sex: Female

DRUGS (4)
  1. BETASERON [Suspect]
     Indication: MULTIPLE SCLEROSIS
     Dosage: TOTAL DAILY DOSE: 8 MIU
     Route: 058
     Dates: start: 20090904
  2. BETASERON [Suspect]
     Dosage: TOTAL DAILY DOSE: 8 MIU
     Route: 058
  3. PROVIGIL [Concomitant]
     Dosage: TOTAL DAILY DOSE: 100 MG
     Route: 065
  4. BACLOFEN [Concomitant]
     Dosage: TOTAL DAILY DOSE: 20 MG
     Route: 065

REACTIONS (26)
  - ARTHRALGIA [None]
  - ASTHENIA [None]
  - BURNING SENSATION [None]
  - CONSTIPATION [None]
  - DEPRESSION [None]
  - FALL [None]
  - FATIGUE [None]
  - GAIT DISTURBANCE [None]
  - HYPOAESTHESIA [None]
  - HYPOTENSION [None]
  - INJECTION SITE ERYTHEMA [None]
  - INJECTION SITE PAIN [None]
  - INJECTION SITE SWELLING [None]
  - INJECTION SITE ULCER [None]
  - LOSS OF CONSCIOUSNESS [None]
  - MASS [None]
  - MULTIPLE SCLEROSIS [None]
  - MUSCLE SPASTICITY [None]
  - OPTIC NERVE INJURY [None]
  - PARAESTHESIA [None]
  - PERONEAL NERVE PALSY [None]
  - RASH [None]
  - VISUAL IMPAIRMENT [None]
  - VITAMIN B COMPLEX DEFICIENCY [None]
  - VOMITING [None]
  - WEIGHT DECREASED [None]
